FAERS Safety Report 10714160 (Version 1)
Quarter: 2015Q1

REPORT INFORMATION
  Report Type: Spontaneous
  Country: IT (occurrence: IT)
  Receive Date: 20150115
  Receipt Date: 20150115
  Transmission Date: 20150721
  Serious: Yes (Hospitalization)
  Sender: FDA-Public Use
  Company Number: IT-ABBVIE-15P-083-1332979-00

PATIENT
  Age: 56 Year
  Sex: Male

DRUGS (4)
  1. OXYBUTYNIN HYDROCHLORIDE [Suspect]
     Active Substance: OXYBUTYNIN CHLORIDE
     Indication: SUICIDE ATTEMPT
     Dosage: TOTAL
     Route: 048
     Dates: start: 20141031, end: 20141031
  2. DEPAKENE [Suspect]
     Active Substance: VALPROIC ACID
     Indication: SUICIDE ATTEMPT
     Dosage: EXTENDED RELEASE
     Route: 048
     Dates: start: 20141031, end: 20141031
  3. INDERAL [Suspect]
     Active Substance: PROPRANOLOL HYDROCHLORIDE
     Indication: SUICIDE ATTEMPT
     Dosage: 800MG TOTAL
     Route: 048
     Dates: start: 20141031, end: 20141031
  4. DEPAKIN [Suspect]
     Active Substance: VALPROATE SODIUM
     Indication: SUICIDE ATTEMPT
     Dosage: GASTRO-RESISTANT TABLET 10000MG TOTAL
     Route: 048
     Dates: start: 20141031, end: 20141031

REACTIONS (3)
  - Drug abuse [Unknown]
  - Suicide attempt [Unknown]
  - Sopor [Unknown]

NARRATIVE: CASE EVENT DATE: 20141031
